FAERS Safety Report 12742585 (Version 1)
Quarter: 2016Q3

REPORT INFORMATION
  Report Type: Spontaneous
  Country: US (occurrence: US)
  Receive Date: 20160914
  Receipt Date: 20160914
  Transmission Date: 20161109
  Serious: Yes (Hospitalization)
  Sender: FDA-Public Use
  Company Number: US-ACTELION-A-NJ2016-142100

PATIENT
  Age: 68 Year
  Sex: Male

DRUGS (12)
  1. RIOCIGUAT [Concomitant]
     Active Substance: RIOCIGUAT
  2. COLCHICINE. [Concomitant]
     Active Substance: COLCHICINE
  3. OPSUMIT [Suspect]
     Active Substance: MACITENTAN
     Indication: PULMONARY ARTERIAL HYPERTENSION
     Dosage: 10 MG, QD
     Route: 048
     Dates: start: 20160817
  4. TAMSULOSIN [Concomitant]
     Active Substance: TAMSULOSIN
  5. FELODIPINE. [Concomitant]
     Active Substance: FELODIPINE
  6. ALLOPURINOL. [Concomitant]
     Active Substance: ALLOPURINOL
  7. FUROSEMIDE. [Concomitant]
     Active Substance: FUROSEMIDE
  8. NEXIUM [Concomitant]
     Active Substance: ESOMEPRAZOLE MAGNESIUM
  9. AMIODARONE [Concomitant]
     Active Substance: AMIODARONE
  10. ATIVAN [Concomitant]
     Active Substance: LORAZEPAM
  11. ELIQUIS [Concomitant]
     Active Substance: APIXABAN
  12. PERCOCET [Concomitant]
     Active Substance: ACETAMINOPHEN\OXYCODONE HYDROCHLORIDE

REACTIONS (2)
  - Condition aggravated [Not Recovered/Not Resolved]
  - Atrial fibrillation [Not Recovered/Not Resolved]
